FAERS Safety Report 11789402 (Version 5)
Quarter: 2016Q2

REPORT INFORMATION
  Report Type: Report from Study
  Country: FR (occurrence: FR)
  Receive Date: 20151201
  Receipt Date: 20160506
  Transmission Date: 20160815
  Serious: Yes (Hospitalization, Other)
  Sender: FDA-Public Use
  Company Number: FR-REGENERON PHARMACEUTICALS, INC.-2015-14218

PATIENT

DRUGS (12)
  1. EYLEA [Suspect]
     Active Substance: AFLIBERCEPT
     Dosage: FOLLOW-UP 2 VISIT, BILATERAL EYLEA INJECTION
     Route: 065
     Dates: start: 20150218, end: 20150218
  2. OFLOXACIN. [Concomitant]
     Active Substance: OFLOXACIN
     Dosage: UNK
     Dates: start: 20150121, end: 20150121
  3. OXYBUPROCAINE [Concomitant]
     Active Substance: BENOXINATE
     Indication: LOCAL ANAESTHESIA
     Dosage: UNK
     Dates: start: 20150218, end: 20150218
  4. EYLEA [Suspect]
     Active Substance: AFLIBERCEPT
     Dosage: FOLLOW-UP 4 VISIT, BILATERAL EYLEA INJECTION
     Route: 065
     Dates: start: 20150513, end: 20150513
  5. OFLOXACIN. [Concomitant]
     Active Substance: OFLOXACIN
     Dosage: UNK
     Dates: start: 20150513, end: 20150513
  6. OFLOXACIN. [Concomitant]
     Active Substance: OFLOXACIN
     Indication: ANTIBIOTIC PROPHYLAXIS
     Dosage: UNK
     Dates: start: 20141222, end: 20141222
  7. OXYBUPROCAINE [Concomitant]
     Active Substance: BENOXINATE
     Dosage: UNK
     Dates: start: 20150513, end: 20150513
  8. EYLEA [Suspect]
     Active Substance: AFLIBERCEPT
     Indication: NEOVASCULAR AGE-RELATED MACULAR DEGENERATION
     Dosage: FIRST VISIT, BILATERAL EYLEA INJECTION
     Dates: start: 20141222, end: 20141222
  9. TETRACAINE. [Concomitant]
     Active Substance: TETRACAINE
     Dosage: UNK
     Dates: start: 20150121, end: 20150121
  10. OFLOXACIN. [Concomitant]
     Active Substance: OFLOXACIN
     Dosage: UNK
     Dates: start: 20150218, end: 20150218
  11. TETRACAINE. [Concomitant]
     Active Substance: TETRACAINE
     Indication: LOCAL ANAESTHESIA
     Dosage: UNK
     Dates: start: 20141222, end: 20141222
  12. EYLEA [Suspect]
     Active Substance: AFLIBERCEPT
     Dosage: FOLLOW-UP 1 VISIT, BILATERAL EYLEA INJECTION
     Route: 065
     Dates: start: 20150121, end: 20150121

REACTIONS (2)
  - Pancreatitis [Recovered/Resolved]
  - Cardiac failure [Recovering/Resolving]

NARRATIVE: CASE EVENT DATE: 20150720
